FAERS Safety Report 7135195-2 (Version None)
Quarter: 2010Q4

REPORT INFORMATION
  Report Type: 
  Country: None (occurrence: None)
  Receive Date: 20101203
  Receipt Date: 20101110
  Transmission Date: 20110411
  Serious: No
  Sender: FDA-Public Use
  Company Number: US-PFIZER INC-US-WYE-H18041310

PATIENT
  Sex: Female
  Weight: 77.18 kg

DRUGS (1)
  1. PREMARIN [Suspect]
     Indication: VULVOVAGINAL DRYNESS
     Dosage: UNK
     Route: 067
     Dates: start: 20100910, end: 20100917

REACTIONS (6)
  - GENITAL RASH [None]
  - RASH ERYTHEMATOUS [None]
  - VULVOVAGINAL DISCOMFORT [None]
  - VULVOVAGINAL PAIN [None]
  - WOUND COMPLICATION [None]
  - WOUND SECRETION [None]
